FAERS Safety Report 4830218-5 (Version None)
Quarter: 2005Q4

REPORT INFORMATION
  Report Type: 
  Country: None (occurrence: None)
  Receive Date: 20051115
  Receipt Date: 20051115
  Transmission Date: 20060501
  Serious: Yes (Hospitalization)
  Sender: FDA-Public Use
  Company Number: None

PATIENT
  Age: 66 Year
  Sex: Female
  Weight: 69.4911 kg

DRUGS (13)
  1. DIGOXIN [Suspect]
     Indication: CARDIAC FAILURE CONGESTIVE
     Dosage: 0.125 MG PO DAILY
     Route: 048
  2. AMIODARONE [Concomitant]
  3. COUMADIN [Concomitant]
  4. DIGOXIN [Concomitant]
  5. COREG [Concomitant]
  6. INSULIN [Concomitant]
  7. IRBESARTAN [Concomitant]
  8. MAG OXIDE [Concomitant]
  9. GLUCOTROL [Concomitant]
  10. ZOCOR [Concomitant]
  11. LASIX [Concomitant]
  12. ASPIRIN [Concomitant]
  13. IMDUR [Concomitant]

REACTIONS (6)
  - CONSTIPATION [None]
  - DEHYDRATION [None]
  - DIZZINESS [None]
  - NAUSEA [None]
  - THERAPEUTIC AGENT TOXICITY [None]
  - VOMITING [None]
